FAERS Safety Report 20482281 (Version 2)
Quarter: 2022Q2

REPORT INFORMATION
  Report Type: Report from Study
  Country: IT (occurrence: IT)
  Receive Date: 20220216
  Receipt Date: 20220421
  Transmission Date: 20220721
  Serious: Yes (Other)
  Sender: FDA-Public Use
  Company Number: IT-SUN PHARMACEUTICAL INDUSTRIES LTD-2022R1-326430

PATIENT
  Sex: Male

DRUGS (1)
  1. OXCARBAZEPINE [Suspect]
     Active Substance: OXCARBAZEPINE
     Indication: Behaviour disorder
     Dosage: 300 MILLIGRAM, BID
     Route: 065

REACTIONS (3)
  - Derealisation [Recovering/Resolving]
  - Mutism [Recovering/Resolving]
  - Psychotic behaviour [Recovering/Resolving]
